FAERS Safety Report 9851286 (Version 1)
Quarter: 2014Q1

REPORT INFORMATION
  Report Type: Spontaneous
  Country: IT (occurrence: IT)
  Receive Date: 20140128
  Receipt Date: 20140128
  Transmission Date: 20141002
  Serious: Yes (Hospitalization)
  Sender: FDA-Public Use
  Company Number: IT-ROCHE-1338086

PATIENT
  Age: 64 Year
  Sex: Female

DRUGS (8)
  1. LUCENTIS [Suspect]
     Indication: MACULAR DEGENERATION
     Route: 050
     Dates: start: 20131111
  2. LUCENTIS [Suspect]
     Dosage: 0.23ML
     Route: 050
     Dates: start: 20131220, end: 20131220
  3. RAMIPRIL [Concomitant]
  4. EXEMESTANE [Concomitant]
  5. CORDARONE [Concomitant]
  6. NORVASC [Concomitant]
  7. PEPTAZOL (ITALY) [Concomitant]
  8. LASIX [Concomitant]

REACTIONS (2)
  - Cardiac failure [Recovered/Resolved with Sequelae]
  - Acute pulmonary oedema [Recovered/Resolved with Sequelae]
